FAERS Safety Report 13754182 (Version 1)
Quarter: 2017Q3

REPORT INFORMATION
  Report Type: Spontaneous
  Country: GB (occurrence: GB)
  Receive Date: 20170714
  Receipt Date: 20170714
  Transmission Date: 20171127
  Serious: Yes (Other)
  Sender: FDA-Public Use
  Company Number: GB-ASTRAZENECA-2017SE69828

PATIENT
  Age: 75 Year
  Sex: Female
  Weight: 62 kg

DRUGS (12)
  1. BISACODYL. [Concomitant]
     Active Substance: BISACODYL
     Route: 054
     Dates: start: 20160322
  2. RAMIPRIL. [Concomitant]
     Active Substance: RAMIPRIL
     Indication: HYPERTENSION
     Dates: start: 20170112, end: 20170413
  3. ADALAT [Concomitant]
     Active Substance: NIFEDIPINE
     Indication: RAYNAUD^S PHENOMENON
     Dates: start: 20170119
  4. ESTRADIOL. [Concomitant]
     Active Substance: ESTRADIOL
     Dates: start: 20160627
  5. LEVOTHYROXINE. [Concomitant]
     Active Substance: LEVOTHYROXINE
     Indication: HYPOTHYROIDISM
     Dates: start: 20160322
  6. MIRABEGRON [Concomitant]
     Active Substance: MIRABEGRON
     Indication: URINARY TRACT DISORDER
     Dates: start: 20170413
  7. RANITIDINE. [Concomitant]
     Active Substance: RANITIDINE
     Indication: DYSPEPSIA
     Dates: start: 20170207
  8. TRIMETHOPRIM. [Concomitant]
     Active Substance: TRIMETHOPRIM
     Dates: start: 20170420, end: 20170423
  9. ZOPICLONE [Concomitant]
     Active Substance: ZOPICLONE
     Dates: start: 20170606
  10. OMEPRAZOLE. [Suspect]
     Active Substance: OMEPRAZOLE
     Route: 048
     Dates: start: 20170606
  11. ASPIRIN. [Concomitant]
     Active Substance: ASPIRIN
     Dates: start: 20160322, end: 20170606
  12. ACIDEX [Concomitant]
     Active Substance: CALCIUM CARBONATE\SODIUM ALGINATE\SODIUM BICARBONATE
     Dates: start: 20170602

REACTIONS (2)
  - Acute kidney injury [Unknown]
  - Tubulointerstitial nephritis [Recovering/Resolving]

NARRATIVE: CASE EVENT DATE: 20170627
